FAERS Safety Report 6863956-3 (Version None)
Quarter: 2010Q3

REPORT INFORMATION
  Report Type: 
  Country: None (occurrence: None)
  Receive Date: 20100721
  Receipt Date: 20080521
  Transmission Date: 20110219
  Serious: No
  Sender: FDA-Public Use
  Company Number: US-PFIZER INC-2008022605

PATIENT
  Sex: Male
  Weight: 65.5 kg

DRUGS (8)
  1. CHANTIX [Suspect]
     Indication: SMOKING CESSATION THERAPY
     Dates: start: 20070601, end: 20070701
  2. ATENOLOL [Concomitant]
  3. NITROGLYCERIN [Concomitant]
  4. NITROGLYCERIN [Concomitant]
  5. NEXIUM [Concomitant]
  6. SIMVASTATIN [Concomitant]
  7. ACETYLSALICYLIC ACID [Concomitant]
  8. PLAVIX [Concomitant]

REACTIONS (5)
  - BLOOD PRESSURE SYSTOLIC INCREASED [None]
  - CREATININE RENAL CLEARANCE INCREASED [None]
  - GASTRIC DISORDER [None]
  - GLOMERULAR FILTRATION RATE ABNORMAL [None]
  - NAUSEA [None]
